FAERS Safety Report 12067191 (Version 1)
Quarter: 2016Q1

REPORT INFORMATION
  Report Type: Spontaneous
  Country: US (occurrence: US)
  Receive Date: 20160210
  Receipt Date: 20160210
  Transmission Date: 20160526
  Serious: Yes (Other)
  Sender: FDA-Public Use
  Company Number: US-JNJFOC-20160119129

PATIENT
  Sex: Female
  Weight: 59.88 kg

DRUGS (3)
  1. TOPAMAX [Suspect]
     Active Substance: TOPIRAMATE
     Indication: CERVICAL RADICULOPATHY
     Route: 048
     Dates: start: 20160121
  2. TOPAMAX [Suspect]
     Active Substance: TOPIRAMATE
     Indication: CERVICAL RADICULOPATHY
     Dosage: 50 MG(STRENGTH): 100 MG IN THE AM, 50 MG IN THE PM
     Route: 048
     Dates: start: 20160118, end: 20160120
  3. TOPAMAX [Suspect]
     Active Substance: TOPIRAMATE
     Indication: CERVICAL RADICULOPATHY
     Route: 048
     Dates: end: 20160117

REACTIONS (8)
  - Hypoaesthesia [Recovered/Resolved]
  - Anxiety [Not Recovered/Not Resolved]
  - Foot deformity [Not Recovered/Not Resolved]
  - Muscle contracture [Not Recovered/Not Resolved]
  - Angle closure glaucoma [Unknown]
  - Off label use [Unknown]
  - Product use issue [Unknown]
  - Adverse event [Unknown]
